FAERS Safety Report 4362506-3 (Version None)
Quarter: 2004Q2

REPORT INFORMATION
  Report Type: 
  Country: None (occurrence: None)
  Receive Date: 20040518
  Receipt Date: 20040507
  Transmission Date: 20050107
  Serious: Yes (Hospitalization)
  Sender: FDA-Public Use
  Company Number: US-JNJFOC-20040501539

PATIENT
  Age: 54 Year
  Sex: Female

DRUGS (5)
  1. INFLIXIMAB (INFLIXIMAB, RECOMBINANT) LYOPHILIZED POWDER [Suspect]
     Indication: RHEUMATOID ARTHRITIS
     Dates: start: 20010615
  2. METHOTREXATE [Concomitant]
  3. PREDNISONE [Concomitant]
  4. SYNTHROID [Concomitant]
  5. LORTAB [Concomitant]

REACTIONS (4)
  - ABDOMINAL HERNIA [None]
  - DISEASE RECURRENCE [None]
  - IMPLANT SITE INFECTION [None]
  - INTESTINAL STOMA COMPLICATION [None]
